FAERS Safety Report 8396811-0 (Version None)
Quarter: 2012Q1

REPORT INFORMATION
  Report Type: 
  Country: None (occurrence: None)
  Receive Date: 20120323
  Receipt Date: 20110603
  Transmission Date: 20120608
  Serious: Yes (Hospitalization)
  Sender: FDA-Public Use
  Company Number: 163-21880-11042365

PATIENT
  Age: 89 Year
  Sex: Female
  Weight: 61.2 kg

DRUGS (10)
  1. PROTONIX (PANTOPRAZOLE) (UNKNOWN) [Concomitant]
  2. LISINOPRIL [Concomitant]
  3. ATENOLOL [Concomitant]
  4. NORTRIPTYLINE (NORTRIPTYLINE) (UNKNOWN) [Concomitant]
  5. VICODIN [Concomitant]
  6. HCTZ (HYDROCHLOROTHIAZIDE) (UNKNOWN) [Concomitant]
  7. WARFARIN SODIUM [Concomitant]
  8. LACTULOSE [Concomitant]
  9. REVLIMID [Suspect]
     Indication: 5Q MINUS SYNDROME
     Dosage: 10 MG, 1 IN 1 D, PO 5 MG, 1 IN 1 D, PO
     Route: 048
     Dates: start: 20110601
  10. REVLIMID [Suspect]
     Indication: 5Q MINUS SYNDROME
     Dosage: 10 MG, 1 IN 1 D, PO 5 MG, 1 IN 1 D, PO
     Route: 048
     Dates: start: 20101101

REACTIONS (3)
  - RECTAL HAEMORRHAGE [None]
  - BLOOD COUNT ABNORMAL [None]
  - ASTHENIA [None]
